FAERS Safety Report 9644504 (Version 1)
Quarter: 2013Q4

REPORT INFORMATION
  Report Type: Spontaneous
  Country: US (occurrence: US)
  Receive Date: 20131025
  Receipt Date: 20131025
  Transmission Date: 20140711
  Serious: Yes (Other)
  Sender: FDA-Public Use
  Company Number: US-BRISTOL-MYERS SQUIBB COMPANY-19610773

PATIENT
  Sex: 0

DRUGS (1)
  1. KOMBIGLYZE XR [Suspect]

REACTIONS (2)
  - Arrhythmia [Recovered/Resolved]
  - Cardiac disorder [Recovered/Resolved]
